FAERS Safety Report 22099525 (Version 1)
Quarter: 2023Q1

REPORT INFORMATION
  Report Type: Report from Study
  Country: CA (occurrence: CA)
  Receive Date: 20230315
  Receipt Date: 20230315
  Transmission Date: 20230417
  Serious: Yes (Other)
  Sender: FDA-Public Use
  Company Number: CA-JNJFOC-20230332738

PATIENT
  Sex: Female

DRUGS (1)
  1. REMICADE [Suspect]
     Active Substance: INFLIXIMAB
     Indication: Product used for unknown indication
     Dosage: THE PATIENT RECEIVED INFUSION ON 11-MAR-2023.
     Route: 042

REACTIONS (3)
  - Chemotherapy [Unknown]
  - Fatigue [Recovered/Resolved]
  - Infusion related reaction [Recovered/Resolved]
